FAERS Safety Report 8606440-9 (Version None)
Quarter: 2012Q3

REPORT INFORMATION
  Report Type: 
  Country: None (occurrence: None)
  Receive Date: 20120820
  Receipt Date: 20120813
  Transmission Date: 20120928
  Serious: No
  Sender: FDA-Public Use
  Company Number: US-PFIZER INC-2012198663

PATIENT
  Age: 62 Year
  Sex: Female

DRUGS (1)
  1. PREMARIN [Suspect]
     Dosage: UNK

REACTIONS (5)
  - NERVOUSNESS [None]
  - MALAISE [None]
  - INCONTINENCE [None]
  - DRUG INEFFECTIVE [None]
  - HOT FLUSH [None]
